FAERS Safety Report 6217249-8 (Version None)
Quarter: 2009Q2

REPORT INFORMATION
  Report Type: 
  Country: None (occurrence: None)
  Receive Date: 20090608
  Receipt Date: 20090525
  Transmission Date: 20091009
  Serious: Yes (Death, Hospitalization)
  Sender: FDA-Public Use
  Company Number: JP-PFIZER INC-2009213555

PATIENT
  Age: 81 Year

DRUGS (10)
  1. CYTOTEC [Suspect]
     Indication: GASTRITIS
     Dosage: FREQUENCY: 3X/DAY,
     Dates: start: 20090423, end: 20090502
  2. PL GRAN. [Suspect]
     Indication: PHARYNGITIS
     Dosage: FREQUENCY: 3X/DAY,
     Route: 048
     Dates: start: 20090425, end: 20090427
  3. MEIACT [Suspect]
     Indication: PHARYNGITIS
     Dosage: FREQUENCY: 3X/DAY,
     Route: 048
     Dates: start: 20090423, end: 20090427
  4. ALLELOCK [Suspect]
     Indication: RHINITIS
     Dosage: FREQUENCY: 2X/DAY,
     Route: 048
     Dates: start: 20090423, end: 20090427
  5. VOLTAREN [Suspect]
     Indication: ARTHRITIS
     Dosage: 37.5 MG, 2X/DAY
     Route: 048
     Dates: start: 20090423, end: 20090502
  6. MUCOSOLVAN [Concomitant]
     Dosage: UNK
     Dates: start: 20080201
  7. MUCODYNE [Concomitant]
     Dosage: UNK
     Route: 048
     Dates: start: 20080201
  8. MICARDIS [Concomitant]
     Dosage: UNK
     Route: 048
     Dates: start: 20080201
  9. CONIEL [Concomitant]
     Dosage: UNK
     Route: 048
     Dates: start: 20080201
  10. TEPRENONE [Concomitant]
     Dosage: UNK
     Route: 048
     Dates: start: 20080201

REACTIONS (2)
  - HEPATITIS FULMINANT [None]
  - RENAL FAILURE [None]
